FAERS Safety Report 13670920 (Version 1)
Quarter: 2017Q2

REPORT INFORMATION
  Report Type: Spontaneous
  Country: US (occurrence: US)
  Receive Date: 20170620
  Receipt Date: 20170620
  Transmission Date: 20170830
  Serious: No
  Sender: FDA-Public Use
  Company Number: US-ROCHE-659526

PATIENT
  Age: 54 Year
  Sex: Female

DRUGS (2)
  1. IXEMPRA [Concomitant]
     Active Substance: IXABEPILONE
     Route: 065
  2. XELODA [Suspect]
     Active Substance: CAPECITABINE
     Indication: PRODUCT USED FOR UNKNOWN INDICATION
     Dosage: SECOND CYCLE
     Route: 065

REACTIONS (1)
  - Rash papular [Unknown]
